FAERS Safety Report 16351121 (Version 2)
Quarter: 2019Q2

REPORT INFORMATION
  Report Type: Spontaneous
  Country: US (occurrence: US)
  Receive Date: 20190524
  Receipt Date: 20190531
  Transmission Date: 20190711
  Serious: Yes (Other)
  Sender: FDA-Public Use
  Company Number: US-ALKEM LABORATORIES LIMITED-US-ALKEM-2019-04478

PATIENT
  Age: 27 Year
  Sex: Female

DRUGS (1)
  1. BENZONATATE. [Suspect]
     Active Substance: BENZONATATE
     Indication: PRODUCT USED FOR UNKNOWN INDICATION
     Dosage: UNK, BENZONATATE PERLES THAT WAS HEATED TO A LIQUID FORM
     Route: 042

REACTIONS (3)
  - Overdose [Unknown]
  - Ventricular fibrillation [Recovering/Resolving]
  - Substance use [Unknown]
